FAERS Safety Report 9854543 (Version 2)
Quarter: 2014Q1

REPORT INFORMATION
  Report Type: Spontaneous
  Country: US (occurrence: US)
  Receive Date: 20140130
  Receipt Date: 20140326
  Transmission Date: 20141002
  Serious: No
  Sender: FDA-Public Use
  Company Number: US-BIOGENIDEC-2014BI007550

PATIENT
  Age: 42 Year
  Sex: Female
  Weight: 61 kg

DRUGS (19)
  1. TECFIDERA [Suspect]
     Indication: MULTIPLE SCLEROSIS
     Dates: end: 201311
  2. TYSABRI [Concomitant]
     Indication: MULTIPLE SCLEROSIS
     Route: 042
     Dates: start: 20090507, end: 20090915
  3. TYSABRI [Concomitant]
     Indication: MULTIPLE SCLEROSIS
     Route: 042
     Dates: start: 20120810, end: 20130607
  4. LEXAPRO [Concomitant]
     Route: 048
  5. LEXAPRO [Concomitant]
     Route: 048
  6. LASIX [Concomitant]
     Route: 048
  7. LAMICTAL [Concomitant]
  8. PROVIGIL [Concomitant]
     Route: 048
  9. ESTROVEN [Concomitant]
     Route: 048
  10. KDUR [Concomitant]
     Route: 048
  11. MIRAPEX [Concomitant]
     Indication: RESTLESS LEGS SYNDROME
     Route: 048
  12. PROGESTERONE [Concomitant]
     Route: 048
  13. PHENERGAN [Concomitant]
     Route: 048
  14. FLOMAX [Concomitant]
     Route: 048
  15. XANAX [Concomitant]
     Indication: SLEEP DISORDER
  16. LIORESAL [Concomitant]
     Route: 048
  17. FLEXERIL [Concomitant]
  18. KLORCON [Concomitant]
     Route: 048
  19. PROMETRIUM [Concomitant]

REACTIONS (9)
  - Weight decreased [Unknown]
  - Asthenia [Unknown]
  - Balance disorder [Unknown]
  - Chest pain [Unknown]
  - Migraine [Unknown]
  - Central nervous system lesion [Unknown]
  - Urinary retention [Unknown]
  - Nausea [Unknown]
  - Vomiting [Unknown]
